FAERS Safety Report 9848129 (Version 1)
Quarter: 2014Q1

REPORT INFORMATION
  Report Type: Spontaneous
  Country: US (occurrence: US)
  Receive Date: 20140128
  Receipt Date: 20140128
  Transmission Date: 20141002
  Serious: No
  Sender: FDA-Public Use
  Company Number: US-PFIZER INC-2014021911

PATIENT
  Sex: 0

DRUGS (2)
  1. METHOTREXATE SODIUM [Suspect]
     Dosage: UNK
     Dates: end: 2009
  2. ARAVA [Suspect]
     Dosage: UNK
     Dates: end: 2009

REACTIONS (2)
  - Pyrexia [Unknown]
  - Rash [Unknown]
